FAERS Safety Report 5754270-8 (Version None)
Quarter: 2008Q2

REPORT INFORMATION
  Report Type: 
  Country: None (occurrence: None)
  Receive Date: 20080530
  Receipt Date: 20080521
  Transmission Date: 20081010
  Serious: Yes (Other)
  Sender: FDA-Public Use
  Company Number: US-AMGEN-QUU281482

PATIENT
  Sex: Female

DRUGS (2)
  1. ENBREL [Suspect]
     Indication: PSORIATIC ARTHROPATHY
     Route: 058
     Dates: start: 20070301
  2. ENBREL [Suspect]
     Indication: PSORIASIS

REACTIONS (9)
  - ANKLE FRACTURE [None]
  - CENTRAL NERVOUS SYSTEM LESION [None]
  - FALL [None]
  - FIBROMYALGIA [None]
  - LOWER LIMB FRACTURE [None]
  - PELVIC FRACTURE [None]
  - PSORIASIS [None]
  - PSORIATIC ARTHROPATHY [None]
  - SCOLIOSIS [None]
